FAERS Safety Report 7773126-2 (Version None)
Quarter: 2011Q3

REPORT INFORMATION
  Report Type: 
  Country: None (occurrence: None)
  Receive Date: 20110922
  Receipt Date: 20110413
  Transmission Date: 20111222
  Serious: No
  Sender: FDA-Public Use
  Company Number: US-ASTRAZENECA-2010SE04373

PATIENT
  Age: 29587 Day
  Sex: Female
  Weight: 95.3 kg

DRUGS (12)
  1. SEROQUEL [Suspect]
     Route: 048
     Dates: start: 20060803
  2. NORVASC [Concomitant]
     Dates: start: 20060803
  3. SEPTRA DS [Concomitant]
     Indication: CELLULITIS
     Dosage: 1 B.I.D
     Dates: start: 20060803
  4. MULTI-VITAMIN [Concomitant]
     Dosage: 1 A DAY
     Dates: start: 20060803
  5. ZYRTEC [Concomitant]
     Dosage: 1 P.R.N
     Dates: start: 20060803
  6. LASIX [Concomitant]
     Dates: start: 20060803
  7. DEPAKOTE ER [Concomitant]
     Dates: start: 20060803
  8. FERROUS SULFATE TAB [Concomitant]
     Dates: start: 20060803
  9. SEROQUEL [Suspect]
     Indication: DEMENTIA ALZHEIMER'S TYPE
     Route: 048
     Dates: start: 20050501, end: 20090101
  10. TRAZODONE HYDROCHLORIDE [Concomitant]
     Dates: start: 20060803
  11. NAMENDA [Concomitant]
     Dates: start: 20060803
  12. ARICEPT [Concomitant]
     Dates: start: 20060803

REACTIONS (2)
  - OBESITY [None]
  - TYPE 2 DIABETES MELLITUS [None]
